FAERS Safety Report 10056847 (Version 5)
Quarter: 2014Q3

REPORT INFORMATION
  Report Type: Report from Study
  Country: TW (occurrence: TW)
  Receive Date: 20140403
  Receipt Date: 20140919
  Transmission Date: 20150326
  Serious: Yes (Death)
  Sender: FDA-Public Use
  Company Number: TW-BAYER-2014-049989

PATIENT
  Age: 62 Year
  Sex: Male
  Weight: 55 kg

DRUGS (13)
  1. SORAFENIB (RAF KINASE INHIBITOR) [Suspect]
     Active Substance: SORAFENIB
     Indication: HEPATOCELLULAR CARCINOMA
     Dosage: 400 MG, BID (2 IN 1 D)
     Dates: start: 20140107, end: 20140227
  2. ENTECAVIR [Concomitant]
     Active Substance: ENTECAVIR
  3. SPERSIN [Concomitant]
  4. STROCAIN [OXETACAINE] [Concomitant]
  5. ULTRACET [Concomitant]
     Active Substance: ACETAMINOPHEN\TRAMADOL HYDROCHLORIDE
  6. SORAFENIB (RAF KINASE INHIBITOR) [Suspect]
     Active Substance: SORAFENIB
     Indication: HEPATOCELLULAR CARCINOMA
     Dosage: 400 MG, BID (2 IN 1 D)
     Dates: start: 20140103, end: 20140105
  7. NIFEDIPINE. [Concomitant]
     Active Substance: NIFEDIPINE
  8. ESOMEPRAZOLE [Concomitant]
     Active Substance: ESOMEPRAZOLE
  9. SORAFENIB (RAF KINASE INHIBITOR) [Suspect]
     Active Substance: SORAFENIB
     Indication: HEPATOCELLULAR CARCINOMA
     Dosage: 400 MG, BID (2 IN 1 D)
     Dates: start: 20131211, end: 20140101
  10. METOCLOPRAMIDE. [Concomitant]
     Active Substance: METOCLOPRAMIDE
  11. SILYMARIN [Concomitant]
     Active Substance: MILK THISTLE
  12. SENNOSIDE [Concomitant]
     Active Substance: SENNOSIDES
  13. SIMETHICONE [Concomitant]
     Active Substance: DIMETHICONE\SILICON DIOXIDE\SIMETHICONE

REACTIONS (1)
  - Cardiopulmonary failure [Fatal]

NARRATIVE: CASE EVENT DATE: 20140227
